FAERS Safety Report 14770062 (Version 1)
Quarter: 2018Q2

REPORT INFORMATION
  Report Type: Spontaneous
  Country: US (occurrence: US)
  Receive Date: 20180417
  Receipt Date: 20180417
  Transmission Date: 20180711
  Serious: No
  Sender: FDA-Public Use
  Company Number: US-TEVA-2018-US-876765

PATIENT

DRUGS (1)
  1. OXALIPLATIN INJECTION [Suspect]
     Active Substance: OXALIPLATIN
     Dosage: 50MG/10 ML AND 100MG/20ML
     Route: 065

REACTIONS (1)
  - Infusion related reaction [Unknown]
